FAERS Safety Report 8242260-5 (Version None)
Quarter: 2012Q1

REPORT INFORMATION
  Report Type: 
  Country: None (occurrence: None)
  Receive Date: 20120329
  Receipt Date: 20120326
  Transmission Date: 20120608
  Serious: No
  Sender: FDA-Public Use
  Company Number: US-PFIZER INC-2012077870

PATIENT
  Sex: Female
  Weight: 81.633 kg

DRUGS (3)
  1. LORATADINE AND PSEUDOEPHEDRINE SULFATE [Suspect]
     Indication: HYPERSENSITIVITY
  2. LEVOTHYROXINE [Concomitant]
     Indication: THYROID DISORDER
     Dosage: 200 UG, DAILY
  3. LORATADINE AND PSEUDOEPHEDRINE SULFATE [Suspect]
     Indication: SINUS HEADACHE
     Dosage: UNK, DAILY
     Dates: start: 20120301

REACTIONS (1)
  - DRUG INEFFECTIVE [None]
